FAERS Safety Report 15042800 (Version 2)
Quarter: 2018Q2

REPORT INFORMATION
  Report Type: Report from Study
  Country: US (occurrence: US)
  Receive Date: 20180621
  Receipt Date: 20180628
  Transmission Date: 20180711
  Serious: Yes (Other)
  Sender: FDA-Public Use
  Company Number: US-ROCHE-2142072

PATIENT
  Sex: Female

DRUGS (1)
  1. OCREVUS [Suspect]
     Active Substance: OCRELIZUMAB
     Indication: MULTIPLE SCLEROSIS
     Dosage: THE DIVIDED DOSE 2 WEEKS APART ;ONGOING: YES
     Route: 042
     Dates: start: 201712

REACTIONS (3)
  - Hypersensitivity [Unknown]
  - Pneumonia [Unknown]
  - Bronchitis [Unknown]
